FAERS Safety Report 19742976 (Version 1)
Quarter: 2021Q3

REPORT INFORMATION
  Report Type: Spontaneous
  Country: DE (occurrence: DE)
  Receive Date: 20210824
  Receipt Date: 20210824
  Transmission Date: 20211014
  Serious: Yes (Hospitalization, Other)
  Sender: FDA-Public Use
  Company Number: DE-009507513-2108DEU005192

PATIENT
  Age: 72 Year
  Sex: Female

DRUGS (2)
  1. JANUMET [Suspect]
     Active Substance: METFORMIN HYDROCHLORIDE\SITAGLIPTIN PHOSPHATE
     Dosage: UNK
     Route: 048
  2. COVID?19 VACCINE NOS. [Suspect]
     Active Substance: COVID-19 VACCINE NOS
     Indication: PROPHYLAXIS

REACTIONS (10)
  - Oral pustule [Unknown]
  - Dizziness [Unknown]
  - Pruritus [Unknown]
  - Myalgia [Unknown]
  - Cardiac disorder [Unknown]
  - Mental disorder [Unknown]
  - Diplopia [Unknown]
  - Genital blister [Unknown]
  - Confusional state [Unknown]
  - Cerebrovascular accident [Unknown]
